FAERS Safety Report 9126471 (Version 1)
Quarter: 2013Q1

REPORT INFORMATION
  Report Type: Report from Study
  Country: KR (occurrence: KR)
  Receive Date: 20130121
  Receipt Date: 20130121
  Transmission Date: 20140127
  Serious: Yes (Hospitalization, Other)
  Sender: FDA-Public Use
  Company Number: KR-ABBOTT-13P-090-1035065-00

PATIENT
  Age: 28 Year
  Sex: Female

DRUGS (2)
  1. KALETRA [Suspect]
     Indication: HIV INFECTION
     Route: 048
     Dates: start: 20121024
  2. 3TC COMPLEX [Concomitant]
     Indication: RETROVIRAL INFECTION
     Dosage: 300MG DAILY
     Route: 048
     Dates: start: 20121024

REACTIONS (1)
  - Premature labour [Recovered/Resolved]
